FAERS Safety Report 22113268 (Version 1)
Quarter: 2023Q1

REPORT INFORMATION
  Report Type: Spontaneous
  Country: US (occurrence: US)
  Receive Date: 20230320
  Receipt Date: 20230320
  Transmission Date: 20230418
  Serious: No
  Sender: FDA-Public Use
  Company Number: US-BIOGEN-2023BI01182472

PATIENT
  Age: 54 Year
  Sex: Female

DRUGS (8)
  1. VUMERITY [Suspect]
     Active Substance: DIROXIMEL FUMARATE
     Indication: Multiple sclerosis
     Dosage: TAKE 2 CAPSULES (462MG) BY MOUTH TWICE DAILY.
     Route: 050
     Dates: start: 202301
  2. VUMERITY [Suspect]
     Active Substance: DIROXIMEL FUMARATE
     Dosage: CONFIRMED TOOK STARTING DOSE FOR 7 DAYS
     Route: 050
  3. LATANOPROST [Concomitant]
     Active Substance: LATANOPROST
     Route: 050
  4. VITAMIN E [Concomitant]
     Active Substance: .ALPHA.-TOCOPHEROL
     Route: 050
  5. CALCITRIOL [Concomitant]
     Active Substance: CALCITRIOL
     Route: 050
  6. MAGNESIUM SULFATE [Concomitant]
     Active Substance: MAGNESIUM SULFATE
     Route: 050
  7. VITAMINS [Concomitant]
     Active Substance: VITAMINS
     Route: 050
  8. VITAMIN D [Concomitant]
     Active Substance: VITAMIN D NOS
     Route: 050

REACTIONS (9)
  - Product dose omission issue [Recovered/Resolved]
  - Product dose omission in error [Unknown]
  - Fatigue [Unknown]
  - Injury [Recovered/Resolved]
  - Flushing [Unknown]
  - Urticaria [Unknown]
  - Pruritus [Unknown]
  - Rhinorrhoea [Unknown]
  - Hot flush [Recovered/Resolved]

NARRATIVE: CASE EVENT DATE: 20230101
